FAERS Safety Report 15643104 (Version 1)
Quarter: 2018Q4

REPORT INFORMATION
  Report Type: Report from Study
  Country: CA (occurrence: CA)
  Receive Date: 20181121
  Receipt Date: 20181121
  Transmission Date: 20190205
  Serious: Yes (Other)
  Sender: FDA-Public Use
  Company Number: CA-CELLTRION INC.-2018CA023934

PATIENT

DRUGS (3)
  1. INFLIXIMAB PFIZER (UNKNOWN) [Suspect]
     Active Substance: INFLIXIMAB
     Indication: PRODUCT USED FOR UNKNOWN INDICATION
     Route: 065
  2. HUMIRA [Suspect]
     Active Substance: ADALIMUMAB
     Indication: CROHN^S DISEASE
     Dosage: 40 MG, (1 EVERY 2WEEK(S))
     Route: 058
  3. HUMIRA [Suspect]
     Active Substance: ADALIMUMAB
     Dosage: 40 MG, (1 EVERY 2WEEK(S))
     Route: 058

REACTIONS (7)
  - Malaise [Recovered/Resolved]
  - Post procedural cellulitis [Recovered/Resolved]
  - Drug ineffective [Recovered/Resolved]
  - Post procedural complication [Recovered/Resolved]
  - Gastrointestinal stenosis [Recovered/Resolved]
  - Postoperative wound infection [Recovered/Resolved]
  - Gastrointestinal infection [Recovered/Resolved]
